FAERS Safety Report 5814464-X (Version None)
Quarter: 2008Q3

REPORT INFORMATION
  Report Type: 
  Country: None (occurrence: None)
  Receive Date: 20080718
  Receipt Date: 20080708
  Transmission Date: 20090109
  Serious: Yes (Hospitalization, Other)
  Sender: FDA-Public Use
  Company Number: GB-JNJFOC-20080702360

PATIENT
  Sex: Female
  Weight: 59 kg

DRUGS (11)
  1. REMICADE [Suspect]
     Route: 042
  2. REMICADE [Suspect]
     Indication: RHEUMATOID ARTHRITIS
     Route: 042
  3. BECLOMETHASONE DIPROPIONATE [Concomitant]
  4. CO-PRAXAMOL [Concomitant]
  5. FEMOSTON [Concomitant]
  6. MELOXICAM [Concomitant]
  7. PATOPRAZOLE [Concomitant]
  8. ALBUTEROL [Concomitant]
  9. SALMETEROL [Concomitant]
  10. LEVOTHYROXINE SODIUM [Concomitant]
  11. VALSARTAN [Concomitant]

REACTIONS (1)
  - BREAST CANCER [None]
